FAERS Safety Report 24555864 (Version 2)
Quarter: 2024Q4

REPORT INFORMATION
  Report Type: Spontaneous
  Country: US (occurrence: US)
  Receive Date: 20241028
  Receipt Date: 20241125
  Transmission Date: 20250114
  Serious: Yes (Other)
  Sender: PFIZER
  Company Number: US-PFIZER INC-202400285361

PATIENT
  Age: 61 Year
  Sex: Female

DRUGS (3)
  1. TUKYSA [Suspect]
     Active Substance: TUCATINIB
     Dosage: 2 DF, 2X/DAY
     Route: 048
  2. TUKYSA [Suspect]
     Active Substance: TUCATINIB
     Dosage: 2 DF, 2X/DAY
  3. TUKYSA [Suspect]
     Active Substance: TUCATINIB
     Dosage: 300 MG

REACTIONS (9)
  - Thrombosis [Unknown]
  - Arthralgia [Unknown]
  - Diarrhoea [Unknown]
  - Rash [Unknown]
  - Pain in extremity [Unknown]
  - Muscle spasms [Unknown]
  - Back pain [Unknown]
  - Off label use [Unknown]
  - Product use issue [Unknown]
